FAERS Safety Report 20194598 (Version 8)
Quarter: 2023Q2

REPORT INFORMATION
  Report Type: Spontaneous
  Country: US (occurrence: US)
  Receive Date: 20211216
  Receipt Date: 20230622
  Transmission Date: 20230722
  Serious: Yes (Hospitalization)
  Sender: FDA-Public Use
  Company Number: US-PFIZER INC-202101217102

PATIENT
  Age: 75 Year
  Sex: Female

DRUGS (1)
  1. XELJANZ XR [Suspect]
     Active Substance: TOFACITINIB CITRATE
     Dosage: 11 MG

REACTIONS (7)
  - Knee arthroplasty [Unknown]
  - Shoulder operation [Unknown]
  - Illness [Unknown]
  - Hypoacusis [Unknown]
  - Discomfort [Unknown]
  - Anxiety [Unknown]
  - Product dispensing error [Unknown]
